FAERS Safety Report 23222961 (Version 2)
Quarter: 2023Q4

REPORT INFORMATION
  Report Type: Spontaneous
  Country: GB (occurrence: GB)
  Receive Date: 20231123
  Receipt Date: 20231127
  Transmission Date: 20240109
  Serious: Yes (Death, Other)
  Sender: FDA-Public Use
  Company Number: GB-ABBVIE-5509504

PATIENT

DRUGS (1)
  1. UPADACITINIB [Suspect]
     Active Substance: UPADACITINIB
     Indication: Crohn^s disease
     Route: 048

REACTIONS (2)
  - Death [Fatal]
  - Small intestinal perforation [Unknown]
